FAERS Safety Report 5176667-X (Version None)
Quarter: 2006Q4

REPORT INFORMATION
  Report Type: 
  Country: None (occurrence: None)
  Receive Date: 20061216
  Receipt Date: 20060914
  Transmission Date: 20070319
  Serious: Yes (Death, Hospitalization, Other)
  Sender: FDA-Public Use
  Company Number: DE-ABBOTT-06P-062-0343925-00

PATIENT
  Weight: 66 kg

DRUGS (1)
  1. ZEMPLAR [Suspect]
     Indication: HYPERPARATHYROIDISM SECONDARY
     Route: 050
     Dates: start: 20060213, end: 20060529

REACTIONS (4)
  - FALL [None]
  - POSTOPERATIVE WOUND INFECTION [None]
  - SEPSIS [None]
  - TIBIA FRACTURE [None]
